FAERS Safety Report 6568798-4 (Version None)
Quarter: 2010Q1

REPORT INFORMATION
  Report Type: 
  Country: None (occurrence: None)
  Receive Date: 20100128
  Receipt Date: 20100119
  Transmission Date: 20100710
  Serious: Yes (Other)
  Sender: FDA-Public Use
  Company Number: 2010SP003844

PATIENT
  Sex: Male

DRUGS (2)
  1. REMERON [Suspect]
     Indication: DRUG USE FOR UNKNOWN INDICATION
     Dosage: 30 MG;QD;PO ; 15 MG;QD;PO
     Route: 048
  2. PAXIL [Concomitant]

REACTIONS (1)
  - AGGRESSION [None]
